FAERS Safety Report 9293244 (Version 1)
Quarter: 2013Q2

REPORT INFORMATION
  Report Type: Spontaneous
  Country: IT (occurrence: IT)
  Receive Date: 20130516
  Receipt Date: 20130516
  Transmission Date: 20140414
  Serious: Yes (Hospitalization, Other)
  Sender: FDA-Public Use
  Company Number: IT-BAXTER-2012BAX012103

PATIENT
  Age: 42 Year
  Sex: Male

DRUGS (1)
  1. KIOVIG 100 MG/ML SOLUTION FOR INFUSION [Suspect]
     Indication: DEMYELINATING POLYNEUROPATHY

REACTIONS (4)
  - Splenic vein thrombosis [Unknown]
  - Inferior vena cava syndrome [Unknown]
  - Portal vein thrombosis [Unknown]
  - Intestinal infarction [Unknown]
